FAERS Safety Report 5191485-4 (Version None)
Quarter: 2006Q4

REPORT INFORMATION
  Report Type: 
  Country: None (occurrence: None)
  Receive Date: 20061226
  Receipt Date: 20061208
  Transmission Date: 20070319
  Serious: Yes (Death, Congenital Anomaly)
  Sender: FDA-Public Use
  Company Number: 2006SE06617

PATIENT
  Age: 0 Day
  Sex: Male
  Weight: 1.8 kg

DRUGS (1)
  1. BLOPRESS [Suspect]
     Indication: HYPERTENSION
     Route: 064

REACTIONS (14)
  - CARDIAC FAILURE [None]
  - CONGENITAL HAND MALFORMATION [None]
  - DRUG EXPOSURE DURING PREGNANCY [None]
  - FOETAL DISORDER [None]
  - HYPERAEMIA [None]
  - MULTI-ORGAN DISORDER [None]
  - OLIGOHYDRAMNIOS [None]
  - PLACENTAL DISORDER [None]
  - POTTER'S SYNDROME [None]
  - RENAL APLASIA [None]
  - RENAL HAEMORRHAGE [None]
  - STILLBIRTH [None]
  - TALIPES [None]
  - UMBILICAL CORD PROLAPSE [None]
